FAERS Safety Report 8471298-8 (Version None)
Quarter: 2012Q2

REPORT INFORMATION
  Report Type: 
  Country: None (occurrence: None)
  Receive Date: 20120627
  Receipt Date: 20120621
  Transmission Date: 20120825
  Serious: Yes (Life-Threatening)
  Sender: FDA-Public Use
  Company Number: DE-PFIZER INC-2012129374

PATIENT
  Age: 3 Month
  Sex: Male
  Weight: 4.7 kg

DRUGS (12)
  1. MICTONETTEN [Concomitant]
  2. DIFLUCAN [Concomitant]
  3. COLECALCIFEROL [Concomitant]
  4. CALCIUM CARBONATE [Concomitant]
  5. PARACETAMOL [Concomitant]
  6. AMPICILLIN AND SULBACTAM [Suspect]
     Indication: INFECTION
     Dosage: AT 450 MG
     Route: 042
     Dates: start: 20120522, end: 20120524
  7. SODIUM CHLORIDE [Concomitant]
  8. FERRO [Concomitant]
  9. CEFTAZIDIME [Suspect]
     Indication: INFECTION
     Dosage: AT 450 MG
     Route: 042
     Dates: start: 20120522, end: 20120524
  10. SODIUM POLYSTYRENE SULFONATE [Concomitant]
  11. SAB SIMPLEX [Concomitant]
  12. NEORECORMON ^ROCHE^ [Concomitant]

REACTIONS (2)
  - HYPOPNOEA [None]
  - OVERDOSE [None]
